FAERS Safety Report 8846356 (Version 1)
Quarter: 2012Q4

REPORT INFORMATION
  Report Type: 
  Country: US (occurrence: US)
  Receive Date: 20121018
  Receipt Date: 20121018
  Transmission Date: 20130627
  Serious: No
  Sender: FDA-Public Use
  Company Number: US-BIOGENIDEC-2012BI044041

PATIENT
  Age: 65 Year
  Sex: Female

DRUGS (3)
  1. TYSABRI [Suspect]
     Indication: MULTIPLE SCLEROSIS
     Route: 042
     Dates: start: 20020401
  2. TYSABRI [Suspect]
     Indication: MULTIPLE SCLEROSIS
     Route: 042
     Dates: start: 20080731, end: 20100713
  3. TYSABRI [Suspect]
     Indication: MULTIPLE SCLEROSIS
     Route: 042
     Dates: start: 20110809

REACTIONS (6)
  - Angle closure glaucoma [Not Recovered/Not Resolved]
  - Vision blurred [Recovered/Resolved]
  - Foreign body sensation in eyes [Recovered/Resolved]
  - Fall [Recovered/Resolved]
  - Rib fracture [Not Recovered/Not Resolved]
  - Weight increased [Not Recovered/Not Resolved]
